FAERS Safety Report 7471655-2 (Version None)
Quarter: 2011Q2

REPORT INFORMATION
  Report Type: 
  Country: None (occurrence: None)
  Receive Date: 20110511
  Receipt Date: 20110428
  Transmission Date: 20111010
  Serious: Yes (Hospitalization)
  Sender: FDA-Public Use
  Company Number: ES-RANBAXY-2011R1-44009

PATIENT
  Age: 14 Year
  Sex: Female

DRUGS (1)
  1. FLECAINIDE ACETATE [Suspect]
     Indication: PRODUCT USED FOR UNKNOWN INDICATION
     Dosage: 800MG, UNK
     Route: 048

REACTIONS (2)
  - INTENTIONAL OVERDOSE [None]
  - ELECTROCARDIOGRAM ABNORMAL [None]
